FAERS Safety Report 20605081 (Version 1)
Quarter: 2022Q1

REPORT INFORMATION
  Report Type: Report from Study
  Country: US (occurrence: US)
  Receive Date: 20220317
  Receipt Date: 20220317
  Transmission Date: 20220424
  Serious: Yes (Death, Other)
  Sender: FDA-Public Use
  Company Number: US-ACADIA PHARMACEUTICALS INC.-ACA-2022-PIM-000885

PATIENT
  Age: 78 Year
  Sex: Male

DRUGS (12)
  1. NUPLAZID [Suspect]
     Active Substance: PIMAVANSERIN TARTRATE
     Indication: Parkinson^s disease
     Dosage: 34 MILLIGRAM, QD
     Route: 048
     Dates: start: 20180830
  2. ATORVASTATIN [Concomitant]
     Active Substance: ATORVASTATIN
     Dosage: 10 MILLIGRAM
  3. VITAMIN B COMPLEX [Concomitant]
     Active Substance: CYANOCOBALAMIN\DEXPANTHENOL\NIACINAMIDE\PYRIDOXINE HYDROCHLORIDE\RIBOFLAVIN 5^-PHOSPHATE SODIUM\THIA
  4. CLOPIDOGREL [Concomitant]
     Active Substance: CLOPIDOGREL BISULFATE
     Dosage: 75 MILLIGRAM
  5. FINASTERIDE [Concomitant]
     Active Substance: FINASTERIDE
     Dosage: 5 MILLIGRAM
  6. LEVODOPA [Concomitant]
     Active Substance: LEVODOPA
  7. LOSARTAN POTASSIUM [Concomitant]
     Active Substance: LOSARTAN POTASSIUM
     Dosage: 50 MILLIGRAM
  8. METOPROLOL TARTRATE [Concomitant]
     Active Substance: METOPROLOL TARTRATE
     Dosage: 50 MILLIGRAM
  9. RIVASTIGMINE [Concomitant]
     Active Substance: RIVASTIGMINE
     Dosage: 1.5 MG
  10. SERTRALINE [Concomitant]
     Active Substance: SERTRALINE HYDROCHLORIDE
     Dosage: 50 MILLIGRAM
  11. TAMSULOSIN [Concomitant]
     Active Substance: TAMSULOSIN
     Dosage: 0.4 MG
  12. VITAMIN D NOS [Concomitant]
     Active Substance: VITAMIN D NOS
     Dosage: 1000

REACTIONS (1)
  - Death [Fatal]

NARRATIVE: CASE EVENT DATE: 20220103
